FAERS Safety Report 7741477-3 (Version None)
Quarter: 2011Q3

REPORT INFORMATION
  Report Type: 
  Country: None (occurrence: None)
  Receive Date: 20110909
  Receipt Date: 20110831
  Transmission Date: 20111222
  Serious: Yes (Other)
  Sender: FDA-Public Use
  Company Number: US-RB-026953-11

PATIENT
  Age: 58 Year
  Sex: Male

DRUGS (2)
  1. SUBOXONE [Suspect]
     Indication: DRUG DEPENDENCE
     Dosage: REPORTS TAKING MORE THAN PRESCRIBED, TAKING 2 1/2  8 MG TABLETS PER DAY
     Route: 060
     Dates: start: 20090601
  2. SUBOXONE [Suspect]
     Dosage: REPORTS TAKING 16 MG DAILY
     Route: 060
     Dates: start: 20090601

REACTIONS (11)
  - THERMAL BURN [None]
  - INTENTIONAL OVERDOSE [None]
  - PROSTATE CANCER RECURRENT [None]
  - NAUSEA [None]
  - CONDITION AGGRAVATED [None]
  - MEMORY IMPAIRMENT [None]
  - PROSTATE CANCER [None]
  - ASTHENIA [None]
  - TOOTH INFECTION [None]
  - TOOTH DISORDER [None]
  - HYPERHIDROSIS [None]
